FAERS Safety Report 17725884 (Version 1)
Quarter: 2020Q2

REPORT INFORMATION
  Report Type: Spontaneous
  Country: US (occurrence: US)
  Receive Date: 20200429
  Receipt Date: 20200429
  Transmission Date: 20200714
  Serious: Yes (Other)
  Sender: FDA-Public Use
  Company Number: NVSC2020US114504

PATIENT
  Age: 75 Year
  Sex: Female
  Weight: 58.97 kg

DRUGS (1)
  1. BEOVU [Suspect]
     Active Substance: BROLUCIZUMAB-DBLL
     Indication: NEOVASCULAR AGE-RELATED MACULAR DEGENERATION
     Route: 047
     Dates: start: 20200413, end: 20200427

REACTIONS (5)
  - Anterior chamber inflammation [Unknown]
  - Vitreous floaters [Unknown]
  - Visual impairment [Unknown]
  - Anterior chamber cell [Unknown]
  - Vitreal cells [Unknown]

NARRATIVE: CASE EVENT DATE: 20200413
